FAERS Safety Report 6574776-1 (Version None)
Quarter: 2010Q1

REPORT INFORMATION
  Report Type: 
  Country: None (occurrence: None)
  Receive Date: 20100209
  Receipt Date: 20100127
  Transmission Date: 20100710
  Serious: Yes (Other)
  Sender: FDA-Public Use
  Company Number: PHEH2008US03156

PATIENT
  Sex: Male

DRUGS (13)
  1. ZOMETA [Suspect]
     Indication: BONE DENSITY DECREASED
     Dosage: 4 MG, QMO
     Dates: start: 20050708, end: 20060901
  2. CASODEX [Concomitant]
  3. LUPRON [Concomitant]
  4. SYNTHROID [Concomitant]
  5. FLAGYL [Concomitant]
  6. LORCET-HD [Concomitant]
  7. TYLENOL-500 [Concomitant]
     Dosage: UNK
  8. PEN-VEE K [Concomitant]
     Dosage: 500 MG / QID
  9. LAXATIVES [Concomitant]
     Indication: CONSTIPATION
     Dosage: UNK
  10. KETOCONAZOLE [Concomitant]
     Dosage: UNK
  11. LUNESTA [Concomitant]
     Dosage: UNK
  12. HYDROCORTISONE [Concomitant]
     Dosage: UNK
  13. ALEVE [Concomitant]
     Dosage: UNK

REACTIONS (23)
  - ANAEMIA [None]
  - ANXIETY [None]
  - CHEST DISCOMFORT [None]
  - CONSTIPATION [None]
  - HOT FLUSH [None]
  - IMPAIRED HEALING [None]
  - INJURY [None]
  - MALAISE [None]
  - MYALGIA [None]
  - OSTEITIS [None]
  - OSTEOMYELITIS [None]
  - OSTEONECROSIS [None]
  - PAIN [None]
  - PAIN IN JAW [None]
  - PHYSICAL DISABILITY [None]
  - POOR DENTAL CONDITION [None]
  - PURULENT DISCHARGE [None]
  - SPINAL OSTEOARTHRITIS [None]
  - SWELLING FACE [None]
  - SYNCOPE [None]
  - TOOTH EXTRACTION [None]
  - TOOTH INFECTION [None]
  - WEIGHT DECREASED [None]
